FAERS Safety Report 5755356-4 (Version None)
Quarter: 2008Q2

REPORT INFORMATION
  Report Type: 
  Country: None (occurrence: None)
  Receive Date: 20080529
  Receipt Date: 20080529
  Transmission Date: 20081010
  Serious: Yes (Hospitalization)
  Sender: FDA-Public Use
  Company Number: None

PATIENT
  Sex: Female
  Weight: 69.4003 kg

DRUGS (2)
  1. CUBICIN [Suspect]
     Indication: ENTEROCOCCAL INFECTION
     Dosage: 420 MG DAILY IV
     Route: 042
     Dates: start: 20080416, end: 20080521
  2. CUBICIN [Suspect]
     Indication: WOUND INFECTION BACTERIAL
     Dosage: 420 MG DAILY IV
     Route: 042
     Dates: start: 20080416, end: 20080521

REACTIONS (1)
  - CONVULSION [None]
